FAERS Safety Report 7718282-7 (Version None)
Quarter: 2011Q3

REPORT INFORMATION
  Report Type: 
  Country: None (occurrence: None)
  Receive Date: 20110830
  Receipt Date: 20110823
  Transmission Date: 20111222
  Serious: Yes (Hospitalization, Disabling, Other)
  Sender: FDA-Public Use
  Company Number: PHHY2011CA02158

PATIENT
  Sex: Female

DRUGS (15)
  1. COREG [Concomitant]
     Dosage: 18 MG, QD
  2. ASPIRIN [Concomitant]
  3. SANDOSTATIN [Suspect]
     Indication: NEUROENDOCRINE CARCINOMA
     Dosage: 150 UG, TID
     Route: 058
     Dates: start: 20101219, end: 20110317
  4. PAXIL [Concomitant]
  5. ASCORBIC ACID [Concomitant]
  6. IMOVANE [Concomitant]
  7. LASIX [Concomitant]
  8. ALTACE [Concomitant]
  9. CARVEDILOL [Concomitant]
  10. VITAMIN D [Concomitant]
  11. MULTI-VITAMIN [Concomitant]
  12. COUMADIN [Concomitant]
  13. TYLENOL-500 [Concomitant]
  14. CALCIUM CARBONATE [Concomitant]
  15. DICETEL [Concomitant]

REACTIONS (11)
  - RASH MACULO-PAPULAR [None]
  - HYPOTENSION [None]
  - BRONCHITIS [None]
  - THROMBOSIS [None]
  - RASH PRURITIC [None]
  - ASTHENIA [None]
  - ATRIAL FIBRILLATION [None]
  - CARDIAC FAILURE CONGESTIVE [None]
  - EYE INFLAMMATION [None]
  - FATIGUE [None]
  - CARCINOID HEART DISEASE [None]
